FAERS Safety Report 7032307-6 (Version None)
Quarter: 2010Q4

REPORT INFORMATION
  Report Type: 
  Country: None (occurrence: None)
  Receive Date: 20101007
  Receipt Date: 20100601
  Transmission Date: 20110411
  Serious: Yes (Hospitalization)
  Sender: FDA-Public Use
  Company Number: DE-BRISTOL-MYERS SQUIBB COMPANY-15131212

PATIENT
  Age: 73 Year

DRUGS (7)
  1. CETUXIMAB [Suspect]
     Indication: HEAD AND NECK CANCER
     Dosage: 640MG:8APR2010 TO 08APR2010 400MG:15APR2010 TO ONG RECENT INF:20MAY2010
     Route: 042
     Dates: start: 20100408
  2. CARBOPLATIN [Suspect]
     Indication: HEAD AND NECK CANCER
     Dosage: RECENT INF:20MAY2010
     Route: 042
     Dates: start: 20100408
  3. DOCETAXEL [Suspect]
     Indication: HEAD AND NECK CANCER
     Dosage: RECENT INF:20MAY2010
     Route: 042
     Dates: start: 20100408
  4. OMEPRAZOLE [Concomitant]
  5. CAPTOPRIL [Concomitant]
     Dosage: 25MG IN 2 DOSES
  6. IBUPROFEN [Concomitant]
  7. VERAPAMIL [Concomitant]

REACTIONS (3)
  - PANCYTOPENIA [None]
  - SINUSITIS [None]
  - STOMATITIS [None]
